FAERS Safety Report 10870563 (Version 1)
Quarter: 2015Q1

REPORT INFORMATION
  Report Type: Spontaneous
  Country: US (occurrence: US)
  Receive Date: 20150226
  Receipt Date: 20150226
  Transmission Date: 20150721
  Serious: No
  Sender: FDA-Public Use
  Company Number: US-TEVA-472739USA

PATIENT
  Age: 25 Year
  Sex: Female

DRUGS (1)
  1. AMPHETAMINE W/DEXTROAMPHETAMINE [Suspect]
     Active Substance: AMPHETAMINE SULFATE\DEXTROAMPHETAMINE

REACTIONS (5)
  - Fatigue [Unknown]
  - Irritability [Unknown]
  - Dizziness [Unknown]
  - Heart rate increased [Unknown]
  - Feeling abnormal [Unknown]
